FAERS Safety Report 5113475-X (Version None)
Quarter: 2006Q3

REPORT INFORMATION
  Report Type: 
  Country: None (occurrence: None)
  Receive Date: 20060925
  Receipt Date: 20060403
  Transmission Date: 20061208
  Serious: Yes (Death)
  Sender: FDA-Public Use
  Company Number: ES-AVENTIS-200613576GDDC

PATIENT
  Age: 46 Year
  Sex: Male
  Weight: 45 kg

DRUGS (5)
  1. DOCETAXEL [Suspect]
     Indication: NEOPLASM MALIGNANT
     Route: 042
     Dates: start: 20040620, end: 20040620
  2. CISPLATIN [Suspect]
     Indication: NEOPLASM MALIGNANT
     Route: 042
     Dates: start: 20040620, end: 20040620
  3. FLUOROURACIL [Suspect]
     Indication: NEOPLASM MALIGNANT
     Dosage: DOSE: 1070 MG ON DAYS 1-5
     Route: 042
     Dates: end: 20040620
  4. CIPROFLOXACIN [Concomitant]
     Route: 048
     Dates: start: 20040628
  5. NEUPOGEN [Concomitant]
     Route: 058
     Dates: start: 20040628

REACTIONS (1)
  - DEATH [None]
